FAERS Safety Report 8750666 (Version 2)
Quarter: 2012Q4

REPORT INFORMATION
  Report Type: Spontaneous
  Country: US (occurrence: None)
  Receive Date: 20120813
  Receipt Date: 20120927
  Transmission Date: 20130627
  Serious: Yes (Disabling, Other)
  Sender: FDA-Public Use
  Company Number: ACO_31358_2012

PATIENT
  Age: 52 Year
  Sex: Female
  Weight: 62.1 kg

DRUGS (8)
  1. AMPYRA [Suspect]
     Indication: GAIT DISTURBANCE
     Dosage: 10 MG, BID, ORAL ; 10 MG, BID, ORAL
     Route: 048
     Dates: start: 20120709, end: 20120723
  2. AMPYRA [Suspect]
     Indication: GAIT DISTURBANCE
     Dosage: 10 MG, BID, ORAL ; 10 MG, BID, ORAL
     Route: 048
     Dates: start: 20120801
  3. AVONEX [Concomitant]
  4. CYMBALTA [Concomitant]
  5. HYDROCODONE BITARTRATE [Concomitant]
  6. JUICE PLUS (AMYLASE, ASCORBIC ACID, CELLULASE, FOLIC ACID, LIPASE, PROTEASE) [Concomitant]
  7. LAMICTAL [Concomitant]
  8. ERGOCALCIFEROL [Concomitant]

REACTIONS (12)
  - Abasia [None]
  - Mania [None]
  - Movement disorder [None]
  - Limb injury [None]
  - Pain in extremity [None]
  - Arthralgia [None]
  - Mental disorder [None]
  - Cognitive disorder [None]
  - Social problem [None]
  - Asthenia [None]
  - Executive dysfunction [None]
  - Adverse drug reaction [None]
